FAERS Safety Report 6356532-2 (Version None)
Quarter: 2009Q3

REPORT INFORMATION
  Report Type: 
  Country: None (occurrence: None)
  Receive Date: 20090915
  Receipt Date: 20090909
  Transmission Date: 20100115
  Serious: Yes (Other)
  Sender: FDA-Public Use
  Company Number: AU-AVENTIS-200920214GDDC

PATIENT
  Age: 43 Year
  Sex: Female

DRUGS (8)
  1. ARAVA [Suspect]
     Indication: RHEUMATOID ARTHRITIS
     Route: 048
     Dates: start: 20090401, end: 20090801
  2. METHOTREXATE [Concomitant]
     Dosage: DOSE: UNK
  3. SULFASALAZINE [Concomitant]
     Dosage: DOSE: UNK
  4. PREDNISONE [Concomitant]
     Dosage: DOSE: UNK
  5. FOLIC ACID [Concomitant]
     Dosage: DOSE: UNK
  6. LOSEC                              /00661201/ [Concomitant]
     Dosage: DOSE: UNK
  7. FISH OIL [Concomitant]
     Dosage: DOSE: UNK
  8. CALTRATE                           /00108001/ [Concomitant]
     Dosage: DOSE: UNK

REACTIONS (3)
  - COUGH [None]
  - LUNG NEOPLASM [None]
  - PERICARDIAL EFFUSION [None]
